FAERS Safety Report 21837417 (Version 1)
Quarter: 2023Q1

REPORT INFORMATION
  Report Type: Spontaneous
  Country: US (occurrence: None)
  Receive Date: 20230106
  Receipt Date: 20230106
  Transmission Date: 20230417
  Serious: No
  Sender: FDA-Public Use
  Company Number: None

PATIENT
  Sex: Female

DRUGS (1)
  1. STELARA [Suspect]
     Active Substance: USTEKINUMAB
     Indication: Psoriasis
     Dosage: 45MG  EVERY 12 WEEKS SQ?
     Route: 058
     Dates: start: 202109

REACTIONS (3)
  - Needle issue [None]
  - Product dose omission issue [None]
  - Device delivery system issue [None]
